FAERS Safety Report 9993467 (Version 1)
Quarter: 2014Q1

REPORT INFORMATION
  Report Type: Spontaneous
  Country: FR (occurrence: FR)
  Receive Date: 20140310
  Receipt Date: 20140310
  Transmission Date: 20141002
  Serious: Yes (Death, Hospitalization, Other)
  Sender: FDA-Public Use
  Company Number: FR-GILEAD-2014-0096017

PATIENT
  Age: 50 Year
  Sex: Female

DRUGS (9)
  1. VIREAD [Suspect]
     Indication: HIV INFECTION
     Dosage: UNK
     Route: 065
     Dates: start: 20100622
  2. PREZISTA [Suspect]
     Indication: HIV INFECTION
     Dosage: UNK
     Dates: start: 20120218, end: 20130307
  3. DEROXAT [Suspect]
     Indication: DEPRESSION
     Dosage: 2 DF, QD
     Route: 065
     Dates: start: 20130225
  4. DEROXAT [Suspect]
     Dosage: UNK
     Route: 065
  5. NORVIR [Suspect]
     Indication: HIV INFECTION
     Dosage: UNK
     Route: 048
     Dates: start: 20121218
  6. ABILIFY [Suspect]
     Indication: DEPRESSION
     Dosage: UNK
     Dates: start: 20130313, end: 20130412
  7. RISPERDAL [Suspect]
     Indication: DEPRESSION
     Dosage: UNK
     Route: 048
     Dates: start: 20130412
  8. CELSENTRI [Suspect]
     Indication: HIV INFECTION
     Dosage: UNK
     Route: 048
     Dates: start: 20100622
  9. INVIRASE [Suspect]
     Indication: HIV INFECTION
     Dosage: UNK
     Route: 048
     Dates: start: 20130307

REACTIONS (2)
  - Completed suicide [Fatal]
  - Depression [Fatal]
